FAERS Safety Report 13297348 (Version 2)
Quarter: 2017Q1

REPORT INFORMATION
  Report Type: Spontaneous
  Country: US (occurrence: US)
  Receive Date: 20170306
  Receipt Date: 20170317
  Transmission Date: 20170428
  Serious: Yes (Hospitalization, Other)
  Sender: FDA-Public Use
  Company Number: US-GLAXOSMITHKLINE-US2017GSK029933

PATIENT
  Age: 75 Year
  Sex: Female

DRUGS (2)
  1. FLOLAN [Suspect]
     Active Substance: EPOPROSTENOL SODIUM
     Indication: PULMONARY HYPERTENSION
     Dosage: 24 NG/KG/MIN, CO
     Dates: start: 20030707
  2. FLOLAN [Suspect]
     Active Substance: EPOPROSTENOL SODIUM
     Indication: PULMONARY HYPERTENSION

REACTIONS (7)
  - Vessel perforation [Unknown]
  - Procedural haemorrhage [Unknown]
  - Blood pressure decreased [Unknown]
  - Catheter placement [Unknown]
  - Paracentesis [Unknown]
  - Procedural complication [Unknown]
  - Renal disorder [Unknown]

NARRATIVE: CASE EVENT DATE: 20170120
